FAERS Safety Report 8659231 (Version 2)
Quarter: 2013Q1

REPORT INFORMATION
  Report Type: Spontaneous
  Country: BR (occurrence: BR)
  Receive Date: 20120711
  Receipt Date: 20130306
  Transmission Date: 20140127
  Serious: Yes (Other)
  Sender: FDA-Public Use
  Company Number: PHHY2012BR057936

PATIENT
  Sex: Male

DRUGS (11)
  1. FORASEQ [Suspect]
     Indication: ASTHMA
     Dosage: ONE CAPSULE OF EACH TREATMENT (12/400UG)
  2. FORASEQ [Suspect]
     Dosage: ONE CAPSULE OF EACH TREATMENT (12/200UG)
  3. ACETYLSALICYLIC ACID [Concomitant]
     Dosage: 1 DF, QD
     Route: 048
  4. PANTOPRAZOLE [Concomitant]
     Indication: GASTRIC DISORDER
     Dosage: 1 DF, BID
     Route: 048
  5. MONOCORDIL [Concomitant]
     Indication: CARDIAC DISORDER
     Dosage: 1 DF, Q8H
     Route: 048
  6. LOSARTAN [Concomitant]
     Indication: BLOOD PRESSURE INADEQUATELY CONTROLLED
     Dosage: 1 DF, QD
     Route: 048
  7. HIGROTON [Concomitant]
     Dosage: 1 DF, QD
     Route: 048
  8. SYNTHROID [Concomitant]
     Indication: THYROID DISORDER
     Dosage: 1 DF, QD
     Route: 048
  9. GLIFAGE [Concomitant]
     Indication: DIABETES MELLITUS
     Dosage: 2 DF, QD
     Route: 048
  10. ATORVASTATIN [Concomitant]
     Indication: BLOOD CHOLESTEROL
     Dosage: 1 DF, QD
     Route: 048
  11. FINASTERIDE [Concomitant]
     Indication: PROSTATIC DISORDER
     Dosage: 1 DF, QHS
     Route: 048

REACTIONS (3)
  - Oesophageal infection [Recovering/Resolving]
  - Abdominal discomfort [Unknown]
  - Candida infection [Unknown]
